FAERS Safety Report 25751186 (Version 1)
Quarter: 2025Q3

REPORT INFORMATION
  Report Type: Spontaneous
  Country: US (occurrence: None)
  Receive Date: 20250831
  Receipt Date: 20250831
  Transmission Date: 20251020
  Serious: Yes (Hospitalization)
  Sender: FDA-CTU
  Company Number: None

PATIENT
  Age: 80 Year
  Sex: Female
  Weight: 84.6 kg

DRUGS (13)
  1. FLUOROURACIL [Suspect]
     Active Substance: FLUOROURACIL
  2. Metoprolol 12.5 mg daily [Concomitant]
  3. LATANOPROST [Concomitant]
     Active Substance: LATANOPROST
  4. DORZOLAMIDE [Concomitant]
     Active Substance: DORZOLAMIDE
  5. DIETARY SUPPLEMENT\GRAPE SEED EXTRACT [Concomitant]
     Active Substance: DIETARY SUPPLEMENT\GRAPE SEED EXTRACT
  6. VITAMIN E [Concomitant]
     Active Substance: .ALPHA.-TOCOPHEROL
  7. VITAMIN D3 [Concomitant]
     Active Substance: CHOLECALCIFEROL
  8. VITAMIN C [Concomitant]
     Active Substance: ASCORBIC ACID
  9. LYSINE [Concomitant]
     Active Substance: LYSINE
  10. MAGNESIUM [Concomitant]
     Active Substance: MAGNESIUM
  11. Luten [Concomitant]
  12. GINKGO [Concomitant]
     Active Substance: GINKGO
  13. NIACINAMIDE [Concomitant]
     Active Substance: NIACINAMIDE

REACTIONS (3)
  - Atrial fibrillation [None]
  - Headache [None]
  - Brain natriuretic peptide increased [None]

NARRATIVE: CASE EVENT DATE: 20250822
